FAERS Safety Report 21645125 (Version 3)
Quarter: 2022Q4

REPORT INFORMATION
  Report Type: Report from Study
  Country: US (occurrence: US)
  Receive Date: 20221126
  Receipt Date: 20221230
  Transmission Date: 20230112
  Serious: Yes (Other)
  Sender: FDA-Public Use
  Company Number: US-ABBVIE-4214682

PATIENT
  Sex: Female

DRUGS (1)
  1. IMBRUVICA [Suspect]
     Active Substance: IBRUTINIB
     Indication: Chronic lymphocytic leukaemia
     Route: 048
     Dates: start: 20221125

REACTIONS (16)
  - Cardiac operation [Unknown]
  - Nausea [Unknown]
  - Fatigue [Unknown]
  - Cancer pain [Unknown]
  - Malaise [Unknown]
  - Abdominal pain upper [Unknown]
  - Insomnia [Unknown]
  - Joint injury [Unknown]
  - Ear pain [Unknown]
  - Somnolence [Unknown]
  - Herpes zoster [Unknown]
  - Urine uric acid abnormal [Unknown]
  - Neuralgia [Unknown]
  - Spinal fracture [Unknown]
  - Swelling [Unknown]
  - Back injury [Unknown]
